FAERS Safety Report 5769826-6 (Version None)
Quarter: 2008Q2

REPORT INFORMATION
  Report Type: 
  Country: None (occurrence: None)
  Receive Date: 20080613
  Receipt Date: 20080410
  Transmission Date: 20081010
  Serious: Yes (Other)
  Sender: FDA-Public Use
  Company Number: US-ABBOTT-08P-163-0446587-00

PATIENT
  Sex: Male
  Weight: 65.83 kg

DRUGS (5)
  1. HUMIRA [Suspect]
     Indication: PSORIATIC ARTHROPATHY
     Route: 058
     Dates: start: 20060501, end: 20070101
  2. HUMIRA [Suspect]
     Route: 058
     Dates: start: 20070101
  3. PREDNISONE TAB [Concomitant]
     Indication: PSORIATIC ARTHROPATHY
  4. CALCIUM WITH VITAMIN D [Concomitant]
     Indication: OSTEOPOROSIS
  5. CARISOPRODOL [Concomitant]
     Indication: MUSCLE SPASMS

REACTIONS (3)
  - LOWER LIMB FRACTURE [None]
  - PSORIASIS [None]
  - WRIST FRACTURE [None]
